FAERS Safety Report 13118808 (Version 1)
Quarter: 2017Q1

REPORT INFORMATION
  Report Type: Spontaneous
  Country: US (occurrence: US)
  Receive Date: 20170116
  Receipt Date: 20170116
  Transmission Date: 20170428
  Serious: No
  Sender: FDA-Public Use
  Company Number: US-ASTRAZENECA-2006BM01117

PATIENT
  Age: 21004 Day
  Sex: Female
  Weight: 113.4 kg

DRUGS (9)
  1. BYETTA [Suspect]
     Active Substance: EXENATIDE
     Indication: TYPE 2 DIABETES MELLITUS
     Route: 058
     Dates: start: 20051230
  2. METFORMIN [Concomitant]
     Active Substance: METFORMIN HYDROCHLORIDE
     Indication: TYPE 2 DIABETES MELLITUS
     Dosage: 500 MG, QID
     Route: 048
     Dates: start: 2002
  3. BYDUREON [Concomitant]
     Active Substance: EXENATIDE
     Dosage: 10 MCG
  4. BYETTA [Suspect]
     Active Substance: EXENATIDE
     Indication: TYPE 2 DIABETES MELLITUS
     Route: 058
  5. AMARYL [Concomitant]
     Active Substance: GLIMEPIRIDE
     Route: 048
  6. PRAVASTATIN. [Concomitant]
     Active Substance: PRAVASTATIN
  7. LISINOPRIL. [Suspect]
     Active Substance: LISINOPRIL
     Indication: HYPERTENSION
     Route: 048
  8. AMARYL [Concomitant]
     Active Substance: GLIMEPIRIDE
     Dosage: 4 MG, BID
     Route: 048
     Dates: start: 2002
  9. METFORMIN [Concomitant]
     Active Substance: METFORMIN HYDROCHLORIDE
     Indication: TYPE 2 DIABETES MELLITUS
     Dosage: 1000 MG PO IN AM, 500 MG PO IN PM.
     Route: 048

REACTIONS (6)
  - Constipation [Not Recovered/Not Resolved]
  - Blood glucose decreased [Recovered/Resolved]
  - Glycosylated haemoglobin increased [Unknown]
  - Back pain [Not Recovered/Not Resolved]
  - Off label use [Not Recovered/Not Resolved]
  - Abdominal pain upper [Not Recovered/Not Resolved]

NARRATIVE: CASE EVENT DATE: 20051231
